FAERS Safety Report 8963188 (Version 2)
Quarter: 2013Q2

REPORT INFORMATION
  Report Type: Spontaneous
  Country: JP (occurrence: JP)
  Receive Date: 20121213
  Receipt Date: 20130625
  Transmission Date: 20140414
  Serious: Yes (Hospitalization, Other)
  Sender: FDA-Public Use
  Company Number: JP-PFIZER INC-2012305762

PATIENT
  Age: 6 Decade
  Sex: Male
  Weight: 51 kg

DRUGS (1)
  1. SUTENT [Suspect]
     Indication: RENAL CANCER
     Dosage: 50 MG, 1X/DAY, FOR 4 WEEKS WITH 2 WEEKS OF DRUG HOLIDAY
     Route: 048

REACTIONS (3)
  - Necrotising fasciitis [Recovering/Resolving]
  - Leukopenia [Unknown]
  - Neutropenia [Unknown]
